FAERS Safety Report 18356540 (Version 3)
Quarter: 2020Q4

REPORT INFORMATION
  Report Type: Spontaneous
  Country: FR (occurrence: FR)
  Receive Date: 20201007
  Receipt Date: 20201126
  Transmission Date: 20210114
  Serious: Yes (Other)
  Sender: FDA-Public Use
  Company Number: FR-BAUSCH-BL-2020-028567

PATIENT
  Age: 74 Year
  Sex: Female

DRUGS (1)
  1. CARTEOL LP 1% COLLYRE A LIBERATION PROLONGEE EN RECIPIENT UNIDOSE [Suspect]
     Active Substance: CARTEOLOL HYDROCHLORIDE
     Indication: GLAUCOMA
     Dosage: 1 DROP IN BOTH EYES IN THE MORNING
     Route: 047
     Dates: start: 2010, end: 2017

REACTIONS (12)
  - Mitral valve incompetence [Unknown]
  - Electrocardiogram QT prolonged [Unknown]
  - Heart rate decreased [Recovered/Resolved]
  - Fatigue [Recovered/Resolved]
  - Ocular hyperaemia [Unknown]
  - Dacryostenosis acquired [Unknown]
  - Cardiac ventricular disorder [Unknown]
  - Skin fissures [Unknown]
  - Eyelid irritation [Unknown]
  - Dyspnoea [Recovered/Resolved]
  - Psoriasis [Recovering/Resolving]
  - Eye pruritus [Unknown]

NARRATIVE: CASE EVENT DATE: 201702
